FAERS Safety Report 8303851-6 (Version None)
Quarter: 2012Q2

REPORT INFORMATION
  Report Type: 
  Country: None (occurrence: None)
  Receive Date: 20120420
  Receipt Date: 20120420
  Transmission Date: 20120825
  Serious: Yes (Hospitalization)
  Sender: FDA-Public Use
  Company Number: None

PATIENT
  Age: 89 Year
  Sex: Male
  Weight: 59.3 kg

DRUGS (1)
  1. LISINOPRIL [Suspect]
     Indication: HYPERTENSION
     Dosage: 2..5 MG EVERY DAY PO
     Route: 048
     Dates: start: 20030509, end: 20111221

REACTIONS (2)
  - HYPERKALAEMIA [None]
  - SELF-INJURIOUS IDEATION [None]
